FAERS Safety Report 13667714 (Version 1)
Quarter: 2017Q2

REPORT INFORMATION
  Report Type: Spontaneous
  Country: FR (occurrence: FR)
  Receive Date: 20170620
  Receipt Date: 20170620
  Transmission Date: 20170830
  Serious: Yes (Death, Hospitalization, Other)
  Sender: FDA-Public Use
  Company Number: FR-009507513-1706FRA006973

PATIENT
  Age: 75 Year
  Sex: Male

DRUGS (4)
  1. ZOCOR [Suspect]
     Active Substance: SIMVASTATIN
     Dosage: 1 DF, QD
     Route: 048
  2. ATEZOLIZUMAB [Suspect]
     Active Substance: ATEZOLIZUMAB
     Indication: BLADDER CANCER
     Dosage: 1200 MG, Q3W (TEMPORARY UTILIZATION FOR USE)
     Route: 042
     Dates: start: 20170316, end: 20170504
  3. KARDEGIC [Suspect]
     Active Substance: ASPIRIN LYSINE
     Dosage: 1 DF, QD
     Route: 048
     Dates: end: 20170529
  4. NEBIVOLOL. [Suspect]
     Active Substance: NEBIVOLOL
     Dosage: 5 MG, QD
     Route: 048

REACTIONS (6)
  - Hypoalbuminaemia [Not Recovered/Not Resolved]
  - Renal failure [Fatal]
  - Hyponatraemia [Not Recovered/Not Resolved]
  - Vomiting [Not Recovered/Not Resolved]
  - General physical health deterioration [Not Recovered/Not Resolved]
  - Nausea [Not Recovered/Not Resolved]

NARRATIVE: CASE EVENT DATE: 20170425
